FAERS Safety Report 4816494-3 (Version None)
Quarter: 2005Q4

REPORT INFORMATION
  Report Type: 
  Country: None (occurrence: None)
  Receive Date: 20051028
  Receipt Date: 20051017
  Transmission Date: 20060501
  Serious: Yes (Hospitalization)
  Sender: FDA-Public Use
  Company Number: US015933

PATIENT
  Age: 29 Year
  Sex: Female
  Weight: 101.6057 kg

DRUGS (5)
  1. GABITRIL [Suspect]
     Indication: NEURALGIA
     Dosage: 4 MG QD ORAL
     Route: 048
     Dates: start: 20050501, end: 20050101
  2. GABITRIL [Suspect]
     Indication: NEURALGIA
     Dosage: 16 MG QD ORAL
     Route: 048
     Dates: end: 20050818
  3. GABITRIL [Suspect]
     Indication: NEURALGIA
     Dosage: 32 MG QD ORAL
     Route: 048
     Dates: start: 20050819, end: 20050831
  4. REMERON [Concomitant]
  5. NEURONTIN [Concomitant]

REACTIONS (1)
  - STATUS EPILEPTICUS [None]
